FAERS Safety Report 5592317-2 (Version None)
Quarter: 2007Q4

REPORT INFORMATION
  Report Type: 
  Country: None (occurrence: None)
  Receive Date: 20071217
  Receipt Date: 20071113
  Transmission Date: 20080405
  Serious: No
  Sender: FDA-Public Use
  Company Number: BDI-010547

PATIENT
  Age: 36 Year
  Sex: Male

DRUGS (2)
  1. MULTIHANCE [Suspect]
     Indication: NUCLEAR MAGNETIC RESONANCE IMAGING
     Dosage: SY
     Dates: start: 20071113, end: 20071113
  2. MULTIHANCE [Suspect]
     Indication: URINARY INCONTINENCE
     Dosage: SY
     Dates: start: 20071113, end: 20071113

REACTIONS (2)
  - NAUSEA [None]
  - STOMACH DISCOMFORT [None]
